FAERS Safety Report 18839681 (Version 1)
Quarter: 2021Q1

REPORT INFORMATION
  Report Type: Report from Study
  Country: US (occurrence: US)
  Receive Date: 20210204
  Receipt Date: 20210204
  Transmission Date: 20210419
  Serious: No
  Sender: FDA-Public Use
  Company Number: US-EXELIXIS-CABO-20035296

PATIENT
  Sex: Male

DRUGS (1)
  1. CABOMETYX [Suspect]
     Active Substance: CABOZANTINIB S-MALATE
     Indication: PROSTATE CANCER
     Dosage: 60 MG, QD
     Dates: start: 20201027, end: 20201117

REACTIONS (4)
  - Off label use [Unknown]
  - Fatigue [Unknown]
  - Dysphonia [Unknown]
  - Haematuria [Recovered/Resolved]
